FAERS Safety Report 10142561 (Version 1)
Quarter: 2014Q2

REPORT INFORMATION
  Report Type: Spontaneous
  Country: PL (occurrence: PL)
  Receive Date: 20140430
  Receipt Date: 20140430
  Transmission Date: 20141212
  Serious: Yes (Hospitalization, Other)
  Sender: FDA-Public Use
  Company Number: PL-009507513-1404POL012453

PATIENT
  Age: 56 Year
  Sex: Female
  Weight: 51 kg

DRUGS (5)
  1. VICTRELIS [Suspect]
     Indication: CHRONIC HEPATITIS
     Dosage: TOTAL DAILY DOSE: 2400 MG, FREQUENCY:TID
     Route: 048
     Dates: start: 20131119
  2. PEGASYS [Suspect]
     Indication: CHRONIC HEPATITIS C
     Dosage: 135 MICROGRAM, QW
     Route: 058
     Dates: start: 20131022
  3. COPEGUS [Suspect]
     Indication: CHRONIC HEPATITIS C
     Dosage: TOTAL DAILY DOSE: 800 MG, BID
     Route: 048
     Dates: start: 20131022, end: 20140112
  4. COPEGUS [Suspect]
     Dosage: TOTAL DAILY DOSE: 600 MG,BID
     Route: 048
     Dates: start: 20140112
  5. PRESTARIUM (PERINDOPRIL ARGININE) [Concomitant]
     Indication: HYPERTENSION
     Dosage: DAILY DOSE : 5 MG(FREQUENCY: 1X5 MG)
     Route: 048
     Dates: start: 2009

REACTIONS (5)
  - Lymphadenitis [Recovered/Resolved]
  - Pyrexia [Recovered/Resolved]
  - Malaise [Recovered/Resolved]
  - Packed red blood cell transfusion [Recovered/Resolved]
  - Anaemia [Recovered/Resolved]
